FAERS Safety Report 7357781-7 (Version None)
Quarter: 2011Q1

REPORT INFORMATION
  Report Type: 
  Country: None (occurrence: None)
  Receive Date: 20110317
  Receipt Date: 20110310
  Transmission Date: 20110831
  Serious: Yes (Other)
  Sender: FDA-Public Use
  Company Number: DE-NOVOPROD-324810

PATIENT
  Sex: Female

DRUGS (1)
  1. ACTRAPHANE 30 PENFILL [Suspect]
     Indication: DIABETES MELLITUS
     Dosage: UNK
     Dates: start: 20100601

REACTIONS (1)
  - DIARRHOEA [None]
